FAERS Safety Report 9528794 (Version 2)
Quarter: 2014Q2

REPORT INFORMATION
  Report Type: Spontaneous
  Country: US (occurrence: US)
  Receive Date: 20130917
  Receipt Date: 20140407
  Transmission Date: 20141212
  Serious: Yes (Other)
  Sender: FDA-Public Use
  Company Number: US-CUBIST PHARMACEUTICAL, INC.-2013CBST000804

PATIENT
  Sex: 0

DRUGS (2)
  1. CUBICIN [Suspect]
     Indication: EXTRADURAL ABSCESS
     Dosage: 10 ML, QD
     Route: 042
     Dates: start: 20130507
  2. CUBICIN [Suspect]
     Indication: OFF LABEL USE
     Dosage: HIGH DOSE, UNK UNK
     Route: 065
     Dates: start: 20130620, end: 20130802

REACTIONS (1)
  - Acute myocardial infarction [Recovered/Resolved]
